FAERS Safety Report 6257840-6 (Version None)
Quarter: 2009Q3

REPORT INFORMATION
  Report Type: 
  Country: None (occurrence: None)
  Receive Date: 20090706
  Receipt Date: 20090626
  Transmission Date: 20100115
  Serious: Yes (Death, Hospitalization, Disabling, Other)
  Sender: FDA-Public Use
  Company Number: US-ALLERGAN-0808498US

PATIENT
  Age: 69 Year
  Sex: Female

DRUGS (72)
  1. BOTOX [Suspect]
     Indication: NECK PAIN
     Dosage: A SERIES
     Route: 030
     Dates: start: 20070101, end: 20070101
  2. BOTOX [Suspect]
     Indication: MUSCULOSKELETAL PAIN
     Dosage: 100 UNITS, SINGLE
     Route: 030
     Dates: start: 20051028, end: 20051028
  3. BOTOX [Suspect]
     Indication: MUSCLE SPASMS
     Dosage: 100 UNITS, SINGLE
     Route: 030
     Dates: start: 20060306, end: 20060306
  4. BOTOX [Suspect]
     Dosage: 100 UNITS, SINGLE
     Route: 030
     Dates: start: 20060822, end: 20060822
  5. BOTOX [Suspect]
     Dosage: 100 UNITS, SINGLE
     Route: 030
     Dates: start: 20070731, end: 20070731
  6. MARCAINE [Concomitant]
     Indication: NERVE BLOCK
     Dosage: 10 CC, SINGLE
     Dates: start: 20051017, end: 20051017
  7. MARCAINE [Concomitant]
     Indication: ANALGESIA
     Dosage: 10 CC, SINGLE
     Dates: start: 20060911, end: 20060911
  8. MARCAINE [Concomitant]
     Indication: HYPOTONIA
     Dosage: 4.5 CC, SINGLE
     Dates: start: 20070620, end: 20070620
  9. MARCAINE [Concomitant]
     Indication: FACET JOINT BLOCK
  10. DEPO-MEDROL [Concomitant]
     Indication: NERVE BLOCK
     Dosage: 20 MG, SINGLE
     Dates: start: 20051017, end: 20051017
  11. DEPO-MEDROL [Concomitant]
     Indication: ANALGESIA
     Dosage: 20 MG, SINGLE
     Dates: start: 20060911, end: 20060911
  12. DEPO-MEDROL [Concomitant]
     Indication: HYPOTONIA
     Dosage: 80 MG, SINGLE
     Dates: start: 20060927, end: 20060927
  13. DEPO-MEDROL [Concomitant]
     Indication: NECK PAIN
     Dosage: 80 MG, SINGLE
     Dates: start: 20061012, end: 20061012
  14. DEPO-MEDROL [Concomitant]
     Indication: MUSCULOSKELETAL PAIN
     Dosage: 80 MG, SINGLE
     Dates: start: 20061025, end: 20061025
  15. DEPO-MEDROL [Concomitant]
     Indication: FACET JOINT BLOCK
     Dosage: 60 MG, SINGLE
     Dates: start: 20070620, end: 20070620
  16. DEPO-MEDROL [Concomitant]
     Dosage: 40 MG, UNK
  17. ALCOHOL [Concomitant]
     Dosage: UNK, SINGLE
     Route: 061
     Dates: start: 20051017, end: 20051017
  18. LIDOCAINE [Concomitant]
     Indication: FACET JOINT BLOCK
     Dosage: 12 CC, SINGLE
     Dates: start: 20060927, end: 20060927
  19. LIDOCAINE [Concomitant]
     Dosage: 12 CC, SINGLE
     Dates: start: 20061012, end: 20061012
  20. LIDOCAINE [Concomitant]
     Dosage: 12 CC, SINGLE
     Dates: start: 20061025, end: 20061025
  21. LIDOCAINE [Concomitant]
     Dosage: 10 CC, SINGLE
     Dates: start: 20070620, end: 20070620
  22. LIDOCAINE [Concomitant]
     Dosage: 20 ML, SINGLE
     Dates: start: 20080125, end: 20080125
  23. OMNIPAQUE 140 [Concomitant]
     Dosage: 300 DYE
     Dates: start: 20060927, end: 20060927
  24. OMNIPAQUE 140 [Concomitant]
     Dosage: 300 DYE
     Dates: start: 20061012, end: 20061012
  25. OMNIPAQUE 140 [Concomitant]
     Dosage: 300 DYE
     Dates: start: 20061025, end: 20061025
  26. BETADINE [Concomitant]
     Dosage: UNK, SINGLE
     Route: 061
     Dates: start: 20060927, end: 20060927
  27. BETADINE [Concomitant]
     Dosage: UNK, SINGLE
     Route: 061
     Dates: start: 20061012, end: 20061012
  28. BETADINE [Concomitant]
     Dosage: UNK, SINGLE
     Route: 061
     Dates: start: 20070620, end: 20070620
  29. CARDURA [Concomitant]
     Dosage: 2 MG, BID
     Route: 048
  30. PREMARIN [Concomitant]
     Dosage: 0.625 MG, QD
     Route: 048
  31. LOTREL [Concomitant]
     Dosage: UNK, QD
     Route: 048
  32. ASPIRIN [Concomitant]
     Dosage: 81 MG, QD
  33. PRILOSEC [Concomitant]
     Dosage: 20 MG, QAM
     Route: 048
  34. PRILOSEC [Concomitant]
     Dosage: OTC
  35. MULTI-VITAMIN [Concomitant]
     Dosage: UNK, QD
  36. AMBIEN [Concomitant]
     Indication: SLEEP DISORDER
     Dosage: 10 MG, QHS PRN
     Route: 048
     Dates: start: 20060725
  37. AMBIEN [Concomitant]
     Dosage: 12.5 MG, CR
     Route: 048
     Dates: start: 20070925
  38. RESTORIL [Concomitant]
     Indication: SLEEP DISORDER
     Dosage: 15 MG, QHS PRN
     Route: 048
  39. VERSED [Concomitant]
     Indication: COLONOSCOPY
     Dosage: 5 MG, UNK
     Route: 042
  40. VERSED [Concomitant]
     Indication: GASTROSTOMY TUBE INSERTION
  41. DEMEROL [Concomitant]
     Indication: COLONOSCOPY
     Dosage: 50 MG, UNK
     Route: 042
  42. DEMEROL [Concomitant]
     Indication: GASTROSTOMY TUBE INSERTION
  43. ATROPINE [Concomitant]
     Indication: COLONOSCOPY
     Dosage: 0.4 MG, UNK
     Route: 030
  44. PNEUMOCOCCAL VACCINE [Concomitant]
     Dosage: 0.5 CC, UNK
     Route: 030
     Dates: start: 20080220, end: 20080220
  45. XYLOCAINE [Concomitant]
     Indication: ANAESTHESIA
     Dosage: UNK, SINGLE
     Dates: start: 20080220, end: 20080220
  46. FLU SHOT [Concomitant]
     Dosage: UNK, SINGLE
     Dates: start: 20080101, end: 20080101
  47. TETANUS [Concomitant]
     Dosage: UNK, SINGLE
     Dates: start: 20060101, end: 20060101
  48. TYLENOL (CAPLET) [Concomitant]
     Indication: HEADACHE
  49. PROTONIX [Concomitant]
     Dosage: 40 MG, QD
  50. PROTONIX [Concomitant]
     Dosage: 25 MG, UNK
  51. LORTAB [Concomitant]
     Indication: PAIN
     Dosage: 10/500 PO BID OR TID PRN
     Route: 048
  52. SOMA [Concomitant]
     Indication: MUSCLE SPASMS
     Dosage: 350 MG, QHS
     Route: 048
  53. SOMA [Concomitant]
     Dosage: 350 MG, QD
     Route: 048
     Dates: end: 20060627
  54. SOMA [Concomitant]
     Dosage: 350 MG, QD
     Route: 048
     Dates: start: 20060911
  55. SKELAXIN [Concomitant]
  56. IBU [Concomitant]
     Dosage: 400 MG, TID W/FOOD
     Route: 048
  57. BACLOFEN [Concomitant]
     Indication: MUSCLE SPASMS
     Dosage: 20 MG, QHS
     Route: 048
     Dates: start: 20060627, end: 20060725
  58. LYRICA [Concomitant]
     Indication: MUSCLE SPASMS
     Dosage: 50 MG, QHS
     Route: 048
  59. LYRICA [Concomitant]
     Indication: NEUROPATHY PERIPHERAL
  60. LEVAQUIN [Concomitant]
     Indication: ANTIBIOTIC THERAPY
     Dosage: 500 MG, UNK
     Route: 042
     Dates: start: 20080221
  61. LEVAQUIN [Concomitant]
     Dosage: 25 MG/1ML
     Route: 048
     Dates: start: 20080308
  62. LEVAQUIN [Concomitant]
     Dosage: 500 MG, UNK
     Route: 042
     Dates: start: 20080308
  63. JEVITY [Concomitant]
     Indication: SUPPLEMENTATION THERAPY
     Dosage: 40 ML/H
  64. PHENERGAN [Concomitant]
     Route: 030
     Dates: start: 20080220
  65. MESTINON [Concomitant]
     Dosage: 60 MG/5ML
     Route: 048
  66. LOPERAMIDE HCL [Concomitant]
     Dosage: 1MG/ML
     Route: 048
  67. DARVOCET-N 100 [Concomitant]
     Dosage: 325 MG/50MG
     Route: 048
  68. BENAZEPRIL HYDROCHLORIDE [Concomitant]
     Dosage: 5 MG - 20 MG
     Route: 048
  69. VISTARIL [Concomitant]
     Dosage: 2 MG 5 ML 3 ML
     Route: 048
  70. AMLODIPINE BESYLATE [Concomitant]
  71. NARCAN [Concomitant]
     Dosage: 2 MG, UNK
     Route: 042
  72. O2 [Concomitant]

REACTIONS (5)
  - ASPIRATION [None]
  - DYSPHAGIA [None]
  - MALNUTRITION [None]
  - MUSCULAR WEAKNESS [None]
  - WEIGHT DECREASED [None]
